FAERS Safety Report 15789212 (Version 1)
Quarter: 2019Q1

REPORT INFORMATION
  Report Type: Spontaneous
  Country: US (occurrence: US)
  Receive Date: 20190104
  Receipt Date: 20190104
  Transmission Date: 20190417
  Serious: No
  Sender: FDA-Public Use
  Company Number: US-PFIZER INC-2019001325

PATIENT
  Age: 56 Year
  Sex: Female

DRUGS (2)
  1. PREDNISONE. [Suspect]
     Active Substance: PREDNISONE
     Indication: CONDITION AGGRAVATED
     Dosage: 20 MG, 2X/DAY
  2. IBUPROFEN. [Suspect]
     Active Substance: IBUPROFEN
     Indication: CONDITION AGGRAVATED
     Dosage: 800 MG, UNK

REACTIONS (1)
  - Blood pressure increased [Unknown]
